FAERS Safety Report 14842875 (Version 5)
Quarter: 2018Q3

REPORT INFORMATION
  Report Type: Spontaneous
  Country: US (occurrence: US)
  Receive Date: 20180503
  Receipt Date: 20180911
  Transmission Date: 20181010
  Serious: Yes (Hospitalization, Other)
  Sender: FDA-Public Use
  Company Number: US-TAKEDA-2018TUS014268

PATIENT
  Age: 70 Year
  Sex: Male
  Weight: 75.74 kg

DRUGS (15)
  1. COLCHICINE. [Suspect]
     Active Substance: COLCHICINE
     Indication: GOUT
     Dosage: 0.6 MG, UNK
     Route: 065
     Dates: start: 20171025
  2. COLCHICINE. [Suspect]
     Active Substance: COLCHICINE
     Dosage: 0.6 MG, UNK
     Route: 065
     Dates: start: 20171127, end: 20180408
  3. ALLOPURINOL. [Suspect]
     Active Substance: ALLOPURINOL
     Indication: BLOOD URIC ACID INCREASED
     Dosage: 200 MG, UNK
     Route: 048
     Dates: start: 20170927, end: 20180116
  4. SIMVASTATIN. [Concomitant]
     Active Substance: SIMVASTATIN
     Indication: PRODUCT USED FOR UNKNOWN INDICATION
     Dosage: UNK
     Route: 065
     Dates: start: 2015
  5. LESINURAD [Suspect]
     Active Substance: LESINURAD
     Dosage: 200 MG, UNK
     Route: 065
     Dates: start: 20171115
  6. VITAMIN D3 [Concomitant]
     Active Substance: CHOLECALCIFEROL
     Indication: PRODUCT USED FOR UNKNOWN INDICATION
     Dosage: UNK
     Route: 065
     Dates: start: 20030510
  7. LESINURAD [Suspect]
     Active Substance: LESINURAD
     Dosage: 200 MG, UNK
     Route: 065
     Dates: start: 20170927, end: 20171107
  8. BENAZEPRIL [Concomitant]
     Active Substance: BENAZEPRIL HYDROCHLORIDE
     Indication: PRODUCT USED FOR UNKNOWN INDICATION
     Dosage: UNK
     Route: 065
     Dates: start: 2015
  9. LEVOTHYROXINE. [Concomitant]
     Active Substance: LEVOTHYROXINE
     Indication: PRODUCT USED FOR UNKNOWN INDICATION
     Dosage: UNK
     Route: 065
     Dates: start: 2003
  10. SODIUM BICARBONATE. [Concomitant]
     Active Substance: SODIUM BICARBONATE
     Indication: PRODUCT USED FOR UNKNOWN INDICATION
     Dosage: UNK
     Route: 065
     Dates: start: 20171128
  11. LESINURAD [Suspect]
     Active Substance: LESINURAD
     Indication: HYPERURICAEMIA
     Dosage: 100 MG, BID
     Route: 048
     Dates: start: 2015, end: 20170925
  12. METFORMIN [Concomitant]
     Active Substance: METFORMIN HYDROCHLORIDE
     Indication: PRODUCT USED FOR UNKNOWN INDICATION
     Dosage: UNK
     Route: 065
     Dates: start: 2015
  13. ALLOPURINOL. [Suspect]
     Active Substance: ALLOPURINOL
     Indication: GOUT
     Dosage: 100 MG, BID
     Route: 048
     Dates: start: 2015, end: 20170925
  14. ALLOPURINOL. [Suspect]
     Active Substance: ALLOPURINOL
     Dosage: 200 MG, UNK
     Route: 048
     Dates: start: 20180411
  15. GLIPIZIDE. [Concomitant]
     Active Substance: GLIPIZIDE
     Indication: PRODUCT USED FOR UNKNOWN INDICATION
     Dosage: UNK
     Route: 065
     Dates: start: 20161012

REACTIONS (3)
  - Asthenia [Recovered/Resolved]
  - Blood creatine phosphokinase increased [Recovered/Resolved]
  - Weight decreased [Recovered/Resolved]

NARRATIVE: CASE EVENT DATE: 20180406
